FAERS Safety Report 21764271 (Version 3)
Quarter: 2023Q1

REPORT INFORMATION
  Report Type: Spontaneous
  Country: CO (occurrence: CO)
  Receive Date: 20221222
  Receipt Date: 20230202
  Transmission Date: 20230418
  Serious: No
  Sender: FDA-Public Use
  Company Number: CO-009507513-2212COL006608

PATIENT
  Sex: Female

DRUGS (1)
  1. MOLNUPIRAVIR [Suspect]
     Active Substance: MOLNUPIRAVIR
     Indication: Post-acute COVID-19 syndrome
     Dosage: 800 MILLIGRAM, Q12H
     Route: 048

REACTIONS (3)
  - COVID-19 [Recovered/Resolved]
  - Drug effective for unapproved indication [Unknown]
  - No adverse event [Unknown]
